FAERS Safety Report 6167563-X (Version None)
Quarter: 2009Q2

REPORT INFORMATION
  Report Type: 
  Country: None (occurrence: None)
  Receive Date: 20090424
  Receipt Date: 20090326
  Transmission Date: 20091009
  Serious: No
  Sender: FDA-Public Use
  Company Number: US-BAYER-200910984BCC

PATIENT
  Age: 61 Year
  Sex: Female
  Weight: 61 kg

DRUGS (8)
  1. ALEVE [Suspect]
     Indication: ANALGESIA
     Dosage: TOTAL DAILY DOSE: 220 MG  UNIT DOSE: 220 MG
     Route: 048
     Dates: start: 20090325
  2. EFFEXOR XR [Concomitant]
  3. TOPAMAX [Concomitant]
  4. DEPLIN [Concomitant]
  5. OMEPRAZOLE [Concomitant]
  6. FISH OIL [Concomitant]
  7. ZOMIG [Concomitant]
  8. AXERT [Concomitant]

REACTIONS (1)
  - DIZZINESS [None]
